FAERS Safety Report 11109455 (Version 1)
Quarter: 2015Q2

REPORT INFORMATION
  Report Type: Report from Study
  Country: FR (occurrence: FR)
  Receive Date: 20150513
  Receipt Date: 20150513
  Transmission Date: 20150821
  Serious: Yes (Hospitalization)
  Sender: FDA-Public Use
  Company Number: FR-GLAXOSMITHKLINE-FR2015GSK064272

PATIENT
  Age: 68 Year
  Sex: Male

DRUGS (5)
  1. COVERSYL [Concomitant]
     Active Substance: PERINDOPRIL
  2. OMEGA-3-ACID ETHYL ESTERS. [Suspect]
     Active Substance: OMEGA-3-ACID ETHYL ESTERS
     Indication: ISCHAEMIC HEART DISEASE PROPHYLAXIS
     Dosage: UNK
     Dates: start: 20081013, end: 20121018
  3. BISOPROLOL [Concomitant]
     Active Substance: BISOPROLOL
  4. KARDEGIC [Concomitant]
     Active Substance: ASPIRIN LYSINE
  5. PRAVASTATIN [Concomitant]
     Active Substance: PRAVASTATIN\PRAVASTATIN SODIUM

REACTIONS (1)
  - Cataract [Unknown]

NARRATIVE: CASE EVENT DATE: 20090909
